FAERS Safety Report 5844555-9 (Version None)
Quarter: 2008Q3

REPORT INFORMATION
  Report Type: 
  Country: None (occurrence: None)
  Receive Date: 20080814
  Receipt Date: 20080811
  Transmission Date: 20090109
  Serious: Yes (Hospitalization)
  Sender: FDA-Public Use
  Company Number: PHHO2005VE07156

PATIENT
  Sex: Female
  Weight: 49 kg

DRUGS (1)
  1. EXELON [Suspect]
     Indication: DEMENTIA ALZHEIMER'S TYPE
     Dosage: 5-10 CM2
     Dates: start: 20050405, end: 20050427

REACTIONS (4)
  - AGGRESSION [None]
  - DISEASE PROGRESSION [None]
  - DRUG INEFFECTIVE [None]
  - PSYCHOMOTOR HYPERACTIVITY [None]
